FAERS Safety Report 5697335-1 (Version None)
Quarter: 2008Q2

REPORT INFORMATION
  Report Type: 
  Country: None (occurrence: None)
  Receive Date: 20080408
  Receipt Date: 20080326
  Transmission Date: 20081010
  Serious: Yes (Other)
  Sender: FDA-Public Use
  Company Number: DE-BAYER-GB-2007-034957

PATIENT
  Age: 40 Year
  Sex: Male

DRUGS (2)
  1. CAMPATH [Suspect]
     Indication: CHRONIC MYELOID LEUKAEMIA
  2. CYCLOPHOSPHAMIDE [Suspect]
     Indication: CHRONIC MYELOID LEUKAEMIA

REACTIONS (3)
  - CHRONIC GRAFT VERSUS HOST DISEASE [None]
  - HYPERTHYROIDISM [None]
  - HYPOTHYROIDISM [None]
